FAERS Safety Report 9563141 (Version 2)
Quarter: 2013Q3

REPORT INFORMATION
  Report Type: Spontaneous
  Country: US (occurrence: US)
  Receive Date: 20130927
  Receipt Date: 20130927
  Transmission Date: 20140515
  Serious: No
  Sender: FDA-Public Use
  Company Number: US-BRISTOL-MYERS SQUIBB COMPANY-17379496

PATIENT
  Age: 49 Year
  Sex: Female

DRUGS (16)
  1. ONGLYZA TABS 5 MG [Suspect]
     Indication: TYPE 2 DIABETES MELLITUS
     Route: 048
     Dates: start: 20110707
  2. METFORMIN HCL XR TABS 500 MG [Suspect]
     Indication: TYPE 2 DIABETES MELLITUS
     Dosage: ORAL TAB EXTENDED RELEASE
     Route: 048
     Dates: start: 20110907
  3. FLOVENT [Suspect]
     Indication: ASTHMA
     Dosage: 1DF= 2 PUFFS
     Route: 045
     Dates: start: 20120328
  4. INSULIN [Suspect]
     Indication: TYPE 2 DIABETES MELLITUS
     Dosage: BD INSULIN SYR ULTRAFINE II 31GX 5/16 1 ML MISC; 2 TIMES DAILY X250
     Dates: start: 20110919
  5. RISPERDAL [Suspect]
     Indication: BIPOLAR DISORDER
     Dosage: FROM 7JUN11 ALSO
     Route: 048
     Dates: start: 20120709
  6. APIDRA SOLOSTAR [Suspect]
     Indication: TYPE 2 DIABETES MELLITUS
     Dosage: 1DF= 100 UNITS/ML
     Route: 058
     Dates: start: 20121002
  7. PROAIR HFA [Concomitant]
     Indication: ASTHMA
     Dosage: 1DF= 108 -90 BASE - UNITS NOS
     Route: 045
     Dates: start: 20110607
  8. ASPIRIN [Concomitant]
     Indication: ESSENTIAL HYPERTENSION
     Route: 048
     Dates: start: 20110216
  9. ENALAPRIL MALEATE [Concomitant]
     Indication: ESSENTIAL HYPERTENSION
     Route: 048
     Dates: start: 20110216
  10. AMITRIPTYLINE HCL [Concomitant]
     Indication: DEPRESSION
     Route: 048
     Dates: start: 20110216
  11. FAMOTIDINE [Concomitant]
     Indication: GASTROOESOPHAGEAL REFLUX DISEASE
     Route: 048
     Dates: start: 20110222
  12. CYMBALTA [Concomitant]
     Indication: FIBROMYALGIA
     Route: 048
     Dates: start: 20110216
  13. GLIPIZIDE [Concomitant]
     Indication: TYPE 2 DIABETES MELLITUS
     Route: 048
     Dates: start: 20110222
  14. LANTUS [Concomitant]
     Indication: TYPE 2 DIABETES MELLITUS
     Dosage: 1DF= 55 UNITS PER 12 HRS
     Route: 058
     Dates: start: 20110216
  15. RISPERIDONE [Concomitant]
     Indication: BIPOLAR DISORDER
     Route: 048
     Dates: start: 20110607
  16. ASPIRIN + CAFFEINE + BUTALBITAL [Concomitant]
     Indication: MIGRAINE WITH AURA
     Dosage: 50-325-40 MG ORAL CAPSULE; 1 CAPSULE EVERY 4 HOURS A DAY AS NEEDED
     Route: 048
     Dates: start: 20110216

REACTIONS (1)
  - Muscle spasms [Unknown]
